FAERS Safety Report 9242682 (Version 1)
Quarter: 2013Q2

REPORT INFORMATION
  Report Type: Spontaneous
  Country: FR (occurrence: FR)
  Receive Date: 20130419
  Receipt Date: 20130419
  Transmission Date: 20140414
  Serious: Yes (Hospitalization)
  Sender: FDA-Public Use
  Company Number: FR-ELI_LILLY_AND_COMPANY-FR201304003342

PATIENT
  Sex: Female

DRUGS (1)
  1. FORSTEO [Suspect]

REACTIONS (5)
  - Transient ischaemic attack [Unknown]
  - Clonus [Unknown]
  - Headache [Unknown]
  - Hypertension [Unknown]
  - Fatigue [Unknown]
